FAERS Safety Report 9702222 (Version 1)
Quarter: 2013Q4

REPORT INFORMATION
  Report Type: Report from Study
  Country: US (occurrence: US)
  Receive Date: 20131121
  Receipt Date: 20131121
  Transmission Date: 20140711
  Serious: Yes (Other)
  Sender: FDA-Public Use
  Company Number: US-BAYER-2013-140459

PATIENT
  Age: 55 Year
  Sex: Female

DRUGS (1)
  1. STIVARGA [Suspect]
     Indication: COLORECTAL CANCER
     Dosage: 120 MG DAILY
     Route: 048
     Dates: start: 201310

REACTIONS (3)
  - Ascites [None]
  - Nausea [None]
  - Back pain [None]
